FAERS Safety Report 19423622 (Version 4)
Quarter: 2021Q3

REPORT INFORMATION
  Report Type: Spontaneous
  Country: US (occurrence: US)
  Receive Date: 20210616
  Receipt Date: 20210916
  Transmission Date: 20211014
  Serious: Yes (Hospitalization, Other)
  Sender: FDA-Public Use
  Company Number: US-BRISTOL-MYERS SQUIBB COMPANY-BMS-2021-056410

PATIENT
  Sex: Male

DRUGS (6)
  1. ELIQUIS [Suspect]
     Active Substance: APIXABAN
     Dosage: 2.5 MILLIGRAM, BID
     Route: 065
  2. ELIQUIS [Suspect]
     Active Substance: APIXABAN
     Dosage: 2.5 MILLIGRAM, BID
     Route: 065
     Dates: start: 202102
  3. ELIQUIS [Suspect]
     Active Substance: APIXABAN
     Dosage: 5 MILLIGRAM, BID
     Route: 065
  4. ELIQUIS [Suspect]
     Active Substance: APIXABAN
     Dosage: 5 MILLIGRAM, BID
     Route: 065
  5. ASPIRIN [ACETYLSALICYLIC ACID] [Suspect]
     Active Substance: ASPIRIN
     Indication: PRODUCT USED FOR UNKNOWN INDICATION
     Dosage: UNK
     Route: 065
  6. ELIQUIS [Suspect]
     Active Substance: APIXABAN
     Indication: CEREBROVASCULAR ACCIDENT PROPHYLAXIS
     Dosage: 5 MILLIGRAM, BID
     Route: 065
     Dates: start: 201901

REACTIONS (16)
  - Osteonecrosis [Unknown]
  - International normalised ratio increased [Unknown]
  - Infection [Unknown]
  - Skin lesion [Unknown]
  - Swelling [Unknown]
  - Product dose omission issue [Unknown]
  - Blood glucose increased [Unknown]
  - Treatment noncompliance [Unknown]
  - Prothrombin time prolonged [Unknown]
  - Dysphemia [Unknown]
  - Renal haemorrhage [Unknown]
  - Asthenia [Unknown]
  - Muscle injury [Unknown]
  - Urinary bladder haemorrhage [Unknown]
  - Diarrhoea haemorrhagic [Unknown]
  - Nephropathy [Unknown]

NARRATIVE: CASE EVENT DATE: 201903
